FAERS Safety Report 12166980 (Version 1)
Quarter: 2016Q1

REPORT INFORMATION
  Report Type: Spontaneous
  Country: US (occurrence: None)
  Receive Date: 20160309
  Receipt Date: 20160309
  Transmission Date: 20160526
  Serious: Yes (Death)
  Sender: FDA-Public Use
  Company Number: None

PATIENT
  Age: 86 Year
  Sex: Male

DRUGS (2)
  1. FMT OPENBIOME [Suspect]
     Active Substance: FECAL MICROBIOTA
     Indication: CLOSTRIDIUM DIFFICILE COLITIS
     Dosage: 250 CC VIA SIGMOIDOSCOPY
     Dates: start: 20160111
  2. FMT OPENBIOME [Suspect]
     Active Substance: FECAL MICROBIOTA
     Indication: CLOSTRIDIUM DIFFICILE COLITIS
     Dosage: 250 CC VIA SIGMOIDOSCOPY
     Dates: start: 20160106

REACTIONS (1)
  - Death [None]

NARRATIVE: CASE EVENT DATE: 20150113
